FAERS Safety Report 12885370 (Version 2)
Quarter: 2016Q4

REPORT INFORMATION
  Report Type: Spontaneous
  Country: US (occurrence: US)
  Receive Date: 20161026
  Receipt Date: 20161128
  Transmission Date: 20170207
  Serious: No
  Sender: FDA-Public Use
  Company Number: US-GLAXOSMITHKLINE-US2016155753

PATIENT
  Age: 47 Year
  Sex: Male

DRUGS (2)
  1. TRANSDERM SCOP [Suspect]
     Active Substance: SCOPOLAMINE
     Indication: NAUSEA
     Dosage: UNK
     Dates: start: 2012
  2. TRANSDERM SCOP [Suspect]
     Active Substance: SCOPOLAMINE
     Dosage: UNK
     Dates: start: 20160921

REACTIONS (4)
  - Product quality issue [Unknown]
  - Incorrect drug administration duration [Unknown]
  - Malaise [Unknown]
  - Intentional product use issue [Unknown]
